FAERS Safety Report 7029170-6 (Version None)
Quarter: 2010Q4

REPORT INFORMATION
  Report Type: 
  Country: None (occurrence: None)
  Receive Date: 20101005
  Receipt Date: 20100929
  Transmission Date: 20110411
  Serious: Yes (Hospitalization, Other)
  Sender: FDA-Public Use
  Company Number: US-RB-016055-10

PATIENT
  Age: 72 Year
  Sex: Female

DRUGS (2)
  1. SUBOXONE TABLETS [Suspect]
     Indication: PAIN
     Route: 060
     Dates: start: 20091001, end: 20100701
  2. SUBOXONE TABLETS [Suspect]
     Route: 060
     Dates: start: 20100701

REACTIONS (3)
  - BREAST CANCER [None]
  - OFF LABEL USE [None]
  - PNEUMONIA [None]
